FAERS Safety Report 15563922 (Version 1)
Quarter: 2018Q4

REPORT INFORMATION
  Report Type: Spontaneous
  Country: US (occurrence: US)
  Receive Date: 20181030
  Receipt Date: 20181030
  Transmission Date: 20190205
  Serious: Yes (Other)
  Sender: FDA-Public Use
  Company Number: PHHY2018US138457

PATIENT
  Sex: Male

DRUGS (4)
  1. LENVATINIB [Suspect]
     Active Substance: LENVATINIB
     Indication: FOLLICULAR THYROID CANCER
     Dosage: 18 MG, QD
     Route: 048
     Dates: start: 20161013, end: 20180506
  2. LENVATINIB [Suspect]
     Active Substance: LENVATINIB
     Indication: THYROID CANCER
  3. AFINITOR [Suspect]
     Active Substance: EVEROLIMUS
     Indication: FOLLICULAR THYROID CANCER
     Dosage: 5 MG, QD
     Route: 048
     Dates: start: 20180220, end: 20180506
  4. AFINITOR [Suspect]
     Active Substance: EVEROLIMUS
     Indication: THYROID CANCER

REACTIONS (3)
  - Product use in unapproved indication [Unknown]
  - Back disorder [Unknown]
  - Staphylococcal infection [Unknown]
